FAERS Safety Report 17825845 (Version 2)
Quarter: 2020Q2

REPORT INFORMATION
  Report Type: Spontaneous
  Country: PL (occurrence: PL)
  Receive Date: 20200526
  Receipt Date: 20200527
  Transmission Date: 20200714
  Serious: Yes (Death)
  Sender: FDA-Public Use
  Company Number: PL-ABBVIE-20K-129-3418550-00

PATIENT
  Sex: Female

DRUGS (1)
  1. VENCLYXTO [Suspect]
     Active Substance: VENETOCLAX
     Indication: CHRONIC LYMPHOCYTIC LEUKAEMIA
     Route: 048
     Dates: start: 202004, end: 202005

REACTIONS (1)
  - Chronic lymphocytic leukaemia [Fatal]

NARRATIVE: CASE EVENT DATE: 2020
